FAERS Safety Report 9237458 (Version 1)
Quarter: 2013Q2

REPORT INFORMATION
  Report Type: Spontaneous
  Country: US (occurrence: US)
  Receive Date: 20130417
  Receipt Date: 20130417
  Transmission Date: 20140414
  Serious: No
  Sender: FDA-Public Use
  Company Number: US-PFIZER INC-2013116242

PATIENT
  Age: 24 Year
  Sex: Male
  Weight: 99.77 kg

DRUGS (12)
  1. ALPRAZOLAM [Suspect]
     Indication: ANXIETY
     Dosage: 2 MG, 3X/DAY
     Dates: start: 2011
  2. ALPRAZOLAM [Suspect]
     Indication: ACUTE STRESS DISORDER
  3. ALPRAZOLAM [Suspect]
     Indication: POST-TRAUMATIC STRESS DISORDER
  4. ALPRAZOLAM [Suspect]
     Indication: ANXIETY
     Dosage: 1 MG, DAILY
     Dates: start: 2013
  5. ALPRAZOLAM [Suspect]
     Indication: ACUTE STRESS DISORDER
  6. ALPRAZOLAM [Suspect]
     Indication: POST-TRAUMATIC STRESS DISORDER
  7. CYMBALTA [Suspect]
     Indication: FIBROMYALGIA
     Dosage: 30 MG, DAILY
  8. CYMBALTA [Suspect]
     Indication: NERVE INJURY
  9. CYMBALTA [Suspect]
     Indication: DEPRESSION
  10. CYMBALTA [Suspect]
     Indication: ANXIETY
  11. CYMBALTA [Suspect]
     Indication: OBSESSIVE-COMPULSIVE DISORDER
  12. PROTONIX [Concomitant]
     Indication: GASTROOESOPHAGEAL REFLUX DISEASE
     Dosage: 40 MG, DAILY

REACTIONS (3)
  - Headache [Not Recovered/Not Resolved]
  - Dizziness [Not Recovered/Not Resolved]
  - Off label use [Unknown]
